FAERS Safety Report 10402210 (Version 1)
Quarter: 2014Q3

REPORT INFORMATION
  Report Type: Spontaneous
  Country: US (occurrence: US)
  Receive Date: 20140822
  Receipt Date: 20140822
  Transmission Date: 20150326
  Serious: No
  Sender: FDA-Public Use
  Company Number: US-PFIZER INC-2014234391

PATIENT
  Sex: Female

DRUGS (1)
  1. CHANTIX [Suspect]
     Active Substance: VARENICLINE TARTRATE
     Dosage: UNK
     Dates: start: 201408

REACTIONS (6)
  - Movement disorder [Unknown]
  - Sinusitis [Unknown]
  - Lethargy [Unknown]
  - Ear infection [Unknown]
  - Fatigue [Unknown]
  - Eye swelling [Unknown]

NARRATIVE: CASE EVENT DATE: 20140820
